FAERS Safety Report 8487594 (Version 3)
Quarter: 2012Q4

REPORT INFORMATION
  Report Type: 
  Country: US (occurrence: US)
  Receive Date: 20120402
  Receipt Date: 20120912
  Transmission Date: 20130627
  Serious: Yes (Other)
  Sender: FDA-Public Use
  Company Number: US-BAYER-2012-031049

PATIENT
  Age: 21 Year
  Sex: Female
  Weight: 70.3 kg

DRUGS (2)
  1. YAZ [Suspect]
     Indication: CONTRACEPTION
     Dosage: UNK
     Route: 048
     Dates: start: 200801, end: 20080408
  2. YAZ [Suspect]
     Indication: PREMENSTRUAL SYNDROME

REACTIONS (3)
  - Thrombosis [None]
  - Deep vein thrombosis [Recovering/Resolving]
  - Cerebrovascular accident [None]
